FAERS Safety Report 25179550 (Version 1)
Quarter: 2025Q2

REPORT INFORMATION
  Report Type: Spontaneous
  Country: US (occurrence: None)
  Receive Date: 20250408
  Receipt Date: 20250408
  Transmission Date: 20250717
  Serious: Yes (Hospitalization, Other)
  Sender: FDA-CTU
  Company Number: None

PATIENT
  Age: 84 Year
  Sex: Female
  Weight: 65.25 kg

DRUGS (1)
  1. TRELEGY ELLIPTA [Suspect]
     Active Substance: FLUTICASONE FUROATE\UMECLIDINIUM BROMIDE\VILANTEROL TRIFENATATE
     Dates: start: 20250101

REACTIONS (3)
  - Cognitive disorder [None]
  - Amnesia [None]
  - Confusional state [None]

NARRATIVE: CASE EVENT DATE: 20250305
